FAERS Safety Report 6463045-6 (Version None)
Quarter: 2009Q4

REPORT INFORMATION
  Report Type: 
  Country: None (occurrence: None)
  Receive Date: 20091130
  Receipt Date: 20081103
  Transmission Date: 20100525
  Serious: Yes (Other)
  Sender: FDA-Public Use
  Company Number: US-AMGEN-STX298887

PATIENT
  Sex: Female

DRUGS (4)
  1. ENBREL [Suspect]
     Indication: PSORIASIS
     Route: 058
     Dates: start: 20070301
  2. XANAX [Concomitant]
     Dates: start: 20070202
  3. LOMOTIL [Concomitant]
     Dates: start: 20070202
  4. ZYRTEC [Concomitant]
     Dates: start: 20070202

REACTIONS (2)
  - MUSCLE SPASMS [None]
  - SQUAMOUS CELL CARCINOMA [None]
